FAERS Safety Report 4570264-2 (Version None)
Quarter: 2005Q1

REPORT INFORMATION
  Report Type: 
  Country: None (occurrence: None)
  Receive Date: 20050202
  Receipt Date: 20050118
  Transmission Date: 20050727
  Serious: Yes (Hospitalization, Other)
  Sender: FDA-Public Use
  Company Number: PHHO2004JP16330

PATIENT
  Age: 56 Year
  Sex: Female
  Weight: 44.9968 kg

DRUGS (1)
  1. VISUDYNE [Suspect]
     Indication: MACULAR DEGENERATION
     Dosage: 42 MG DAILY IV
     Route: 042
     Dates: start: 20041001, end: 20041001

REACTIONS (4)
  - CONDITION AGGRAVATED [None]
  - EYE HAEMORRHAGE [None]
  - MACULAR DEGENERATION [None]
  - VISUAL ACUITY REDUCED [None]
